FAERS Safety Report 6078606-6 (Version None)
Quarter: 2009Q1

REPORT INFORMATION
  Report Type: 
  Country: None (occurrence: None)
  Receive Date: 20090215
  Receipt Date: 20090213
  Transmission Date: 20090719
  Serious: Yes (Disabling, Other)
  Sender: FDA-Public Use
  Company Number: NL-ALLERGAN-0808496US

PATIENT
  Sex: Female
  Weight: 35 kg

DRUGS (6)
  1. BOTOX [Suspect]
     Indication: MUSCLE SPASTICITY
     Dosage: 445 UNITS, SINGLE
     Route: 030
     Dates: start: 20080501, end: 20080501
  2. BOTOX [Suspect]
     Indication: PAIN
     Dosage: 360 UNITS, SINGLE
     Route: 030
     Dates: start: 20060701, end: 20060701
  3. BOTOX [Suspect]
     Indication: MOVEMENT DISORDER
     Dosage: 280 UNITS, SINGLE
     Route: 030
     Dates: start: 20050701, end: 20050701
  4. BOTOX [Suspect]
     Dosage: 460 UNITS, SINGLE
     Route: 030
     Dates: start: 20040301, end: 20040301
  5. BOTOX [Suspect]
     Dosage: 250 UNITS, SINGLE
     Route: 030
     Dates: start: 20030501, end: 20030501
  6. ANAESTHETIC [Concomitant]
     Indication: INJECTION
     Dosage: UNK, SINGLE
     Dates: start: 20080501, end: 20080501

REACTIONS (5)
  - MUSCLE SPASMS [None]
  - MUSCLE TIGHTNESS [None]
  - MUSCULAR WEAKNESS [None]
  - NECK PAIN [None]
  - TORTICOLLIS [None]
